FAERS Safety Report 14592804 (Version 1)
Quarter: 2018Q1

REPORT INFORMATION
  Report Type: Spontaneous
  Country: US (occurrence: US)
  Receive Date: 20180302
  Receipt Date: 20180302
  Transmission Date: 20180509
  Serious: No
  Sender: FDA-Public Use
  Company Number: US-ENDO PHARMACEUTICALS INC-2017-000591

PATIENT
  Age: 44 Year
  Sex: Male
  Weight: 92.97 kg

DRUGS (1)
  1. XIAFLEX [Suspect]
     Active Substance: COLLAGENASE CLOSTRIDIUM HISTOLYTICUM
     Indication: DUPUYTREN^S CONTRACTURE
     Dosage: 0.58 MG, SINGLE
     Route: 026
     Dates: start: 20161212, end: 20161212

REACTIONS (6)
  - Injection site swelling [Not Recovered/Not Resolved]
  - Pallor [Recovered/Resolved]
  - Injection site bruising [Recovered/Resolved]
  - Cyanosis [Recovered/Resolved]
  - Injection site pain [Recovered/Resolved]
  - Musculoskeletal stiffness [Not Recovered/Not Resolved]

NARRATIVE: CASE EVENT DATE: 20161212
